FAERS Safety Report 23676485 (Version 2)
Quarter: 2024Q2

REPORT INFORMATION
  Report Type: Spontaneous
  Country: DE (occurrence: AT)
  Receive Date: 20240327
  Receipt Date: 20240408
  Transmission Date: 20240716
  Serious: Yes (Other)
  Sender: FDA-Public Use
  Company Number: DE-BAXTER-2024BAX015398

PATIENT
  Age: 42 Year
  Sex: Male

DRUGS (1)
  1. SCOPOLAMINE [Suspect]
     Active Substance: SCOPOLAMINE
     Indication: Salivary hypersecretion
     Dosage: AT AN UNSPECIFIED DOSE EVERY 3 DAYS
     Route: 065

REACTIONS (3)
  - Pneumonia [Recovered/Resolved]
  - Therapeutic response unexpected [Unknown]
  - Expired product administered [Unknown]
